FAERS Safety Report 17839819 (Version 4)
Quarter: 2020Q3

REPORT INFORMATION
  Report Type: Report from Study
  Country: GB (occurrence: GB)
  Receive Date: 20200529
  Receipt Date: 20200712
  Transmission Date: 20201103
  Serious: Yes (Life-Threatening, Hospitalization)
  Sender: FDA-Public Use
  Company Number: NVSC2020GB035417

PATIENT
  Age: 57 Year
  Sex: Female
  Weight: 52.6 kg

DRUGS (45)
  1. CANAKINUMAB. [Suspect]
     Active Substance: CANAKINUMAB
     Indication: NON-SMALL CELL LUNG CANCER
     Dosage: CODE NOT BROKEN
     Route: 058
     Dates: start: 20191220, end: 20200110
  2. BIOTENE ORAL BALANCE [Concomitant]
     Active Substance: DEVICE\XYLITOL
     Indication: DYSPNOEA
     Dosage: UNK
     Route: 065
     Dates: start: 20200114
  3. SALINE [Concomitant]
     Active Substance: SODIUM CHLORIDE
     Indication: PROPHYLAXIS
     Dosage: 0.9% 1000 ML
     Route: 065
     Dates: start: 20200114, end: 20200114
  4. HARTMANNS [Concomitant]
     Active Substance: CALCIUM CHLORIDE\POTASSIUM CHLORIDE\SODIUM LACTATE
     Indication: PROPHYLAXIS
     Dosage: 1000 ML
     Route: 065
     Dates: start: 20200115, end: 20200115
  5. COMPARATOR PEMBROLIZUMAB [Suspect]
     Active Substance: PEMBROLIZUMAB
     Indication: NON-SMALL CELL LUNG CANCER
     Dosage: 200 MG, Q3W
     Route: 042
     Dates: start: 20191220
  6. TAZOCIN [Concomitant]
     Active Substance: PIPERACILLIN SODIUM\TAZOBACTAM SODIUM
     Indication: DYSPNOEA
     Dosage: 4.5 MG
     Route: 065
     Dates: start: 20200113, end: 20200115
  7. SALBUTAMOL [Concomitant]
     Active Substance: ALBUTEROL
     Indication: DYSPNOEA
     Dosage: 2.5 MG
     Route: 065
     Dates: start: 20200114, end: 20200120
  8. PREDNISOLONE. [Concomitant]
     Active Substance: PREDNISOLONE
     Indication: DYSPNOEA
     Dosage: 30 MG
     Route: 065
     Dates: start: 20200116, end: 20200120
  9. SANDO K [Concomitant]
     Indication: DYSPNOEA
     Dosage: 1?2 TABLETS 3X/DAY
     Route: 065
     Dates: start: 20200120, end: 20200121
  10. KCL + NACL 0.9% [Concomitant]
     Dosage: 250 ML (0.9%)
     Route: 065
     Dates: start: 20200120, end: 20200120
  11. PREDNISOLONE. [Concomitant]
     Active Substance: PREDNISOLONE
     Indication: LOWER RESPIRATORY TRACT INFECTION
  12. CARBOCISTEINE [Concomitant]
     Active Substance: CARBOCYSTEINE
     Indication: DYSPNOEA
     Dosage: 750 MG
     Route: 065
     Dates: start: 20200114
  13. DOMPERIDONE [Concomitant]
     Active Substance: DOMPERIDONE
     Indication: LOWER RESPIRATORY TRACT INFECTION
     Dosage: UNK
     Route: 065
     Dates: start: 20200204
  14. LACTULOSE. [Concomitant]
     Active Substance: LACTULOSE
     Indication: DYSPNOEA
     Dosage: 15 ML
     Route: 065
     Dates: start: 20200113, end: 20200113
  15. SALINE [Concomitant]
     Active Substance: SODIUM CHLORIDE
     Indication: LOWER RESPIRATORY TRACT INFECTION
     Dosage: 0.9% 1000 ML
     Route: 065
     Dates: start: 20200116, end: 20200116
  16. SALINE [Concomitant]
     Active Substance: SODIUM CHLORIDE
     Dosage: 0.9% 1000 ML
     Route: 065
     Dates: start: 20200202, end: 20200202
  17. NYSTATIN. [Concomitant]
     Active Substance: NYSTATIN
     Indication: DYSPNOEA
     Dosage: 1 ML
     Route: 065
     Dates: start: 20200114
  18. FERROUS SULFATE. [Concomitant]
     Active Substance: FERROUS SULFATE
     Indication: HAEMOPTYSIS
  19. SALINE [Concomitant]
     Active Substance: SODIUM CHLORIDE
     Dosage: UNK
     Route: 065
     Dates: start: 20200204, end: 20200204
  20. SALBUTAMOL [Concomitant]
     Active Substance: ALBUTEROL
     Indication: LOWER RESPIRATORY TRACT INFECTION
     Dosage: UNK
     Route: 065
     Dates: start: 20200203
  21. DOMPERIDONE [Concomitant]
     Active Substance: DOMPERIDONE
     Indication: DYSPNOEA
     Dosage: 10 MG
     Route: 065
     Dates: start: 20200114, end: 20200114
  22. ORAMORPH [Concomitant]
     Active Substance: MORPHINE SULFATE
     Indication: DYSPNOEA
     Dosage: 5?10 MG
     Route: 065
     Dates: start: 20200114, end: 20200114
  23. HARTMANNS [Concomitant]
     Active Substance: CALCIUM CHLORIDE\POTASSIUM CHLORIDE\SODIUM LACTATE
     Indication: LOWER RESPIRATORY TRACT INFECTION
     Dosage: 1000 ML
     Route: 065
     Dates: start: 20200202, end: 20200202
  24. PARACETAMOL [Concomitant]
     Active Substance: ACETAMINOPHEN
     Indication: CHEST PAIN
     Dosage: 1000 MG
     Route: 065
     Dates: start: 20191121
  25. LACTULOSE. [Concomitant]
     Active Substance: LACTULOSE
     Dosage: 20 ML
     Route: 065
     Dates: start: 20200114
  26. SENNA [Concomitant]
     Active Substance: SENNA LEAF\SENNOSIDES\SENNOSIDES A AND B
     Indication: DYSPNOEA
     Dosage: UNK
     Route: 065
     Dates: start: 20200114
  27. SALINE [Concomitant]
     Active Substance: SODIUM CHLORIDE
     Dosage: 0.9% 250 ML
     Route: 065
     Dates: start: 20200203, end: 20200203
  28. KCL + NACL 0.9% [Concomitant]
     Indication: DYSPNOEA
     Dosage: 1000 ML (0.9%)
     Route: 065
     Dates: start: 20200117, end: 20200117
  29. SIMPLE LINCTUS [Concomitant]
     Active Substance: AMARANTH\CHLOROFORM\CITRIC ACID MONOHYDRATE\PIMPINELLA ANISUM WHOLE
     Indication: DYSPNOEA
     Dosage: 10 ML
     Route: 065
     Dates: start: 20200120, end: 20200120
  30. COMPARATOR PEMETREXED [Suspect]
     Active Substance: PEMETREXED DISODIUM
     Indication: NON-SMALL CELL LUNG CANCER
     Dosage: 750 MG, Q3W
     Route: 042
     Dates: start: 20191220
  31. THYROXINE [Concomitant]
     Active Substance: LEVOTHYROXINE
     Indication: HYPOTHYROIDISM
     Dosage: 100 MCG
     Route: 065
     Dates: start: 20150101
  32. LEVOFLOXACIN. [Concomitant]
     Active Substance: LEVOFLOXACIN
     Indication: DYSPNOEA
     Dosage: 500 MG
     Route: 065
     Dates: start: 20200115, end: 20200121
  33. SALINE [Concomitant]
     Active Substance: SODIUM CHLORIDE
     Dosage: 0.9% 1000 ML
     Route: 065
     Dates: start: 20200117, end: 20200117
  34. CODEINE PHOSPHATE [Concomitant]
     Active Substance: CODEINE PHOSPHATE
     Indication: DYSPNOEA
     Dosage: 30?60 MG
     Route: 065
     Dates: start: 20200113, end: 20200113
  35. FERROUS SULFATE. [Concomitant]
     Active Substance: FERROUS SULFATE
     Indication: HAEMOGLOBIN DECREASED
     Dosage: UNK MG
     Route: 065
     Dates: start: 20191227
  36. GLUCOSE [Concomitant]
     Active Substance: DEXTROSE
     Indication: PROPHYLAXIS
     Dosage: 1000 ML
     Route: 065
     Dates: start: 20200202, end: 20200202
  37. FOLIC ACID. [Concomitant]
     Active Substance: FOLIC ACID
     Indication: ANAEMIA PROPHYLAXIS
     Dosage: 5 MG
     Route: 065
     Dates: start: 20191213
  38. COMPARATOR CARBOPLATIN [Suspect]
     Active Substance: CARBOPLATIN
     Indication: NON-SMALL CELL LUNG CANCER
     Dosage: 630 MG, Q3W
     Route: 042
     Dates: start: 20191220
  39. SALINE [Concomitant]
     Active Substance: SODIUM CHLORIDE
     Indication: DYSPNOEA
     Dosage: 0.99 % 5 MLS
     Route: 065
     Dates: start: 20200114, end: 20200206
  40. IPRATROPIUM BROMIDE. [Concomitant]
     Active Substance: IPRATROPIUM BROMIDE
     Indication: DYSPNOEA
     Dosage: 250 UG
     Route: 065
     Dates: start: 20200115, end: 20200120
  41. OMEPRAZOLE. [Concomitant]
     Active Substance: OMEPRAZOLE
     Indication: DYSPNOEA
     Dosage: 40 MG
     Route: 065
     Dates: start: 20200118
  42. CARBOCISTEINE [Concomitant]
     Active Substance: CARBOCYSTEINE
     Indication: PROPHYLAXIS
     Dosage: 375 MG
     Route: 065
     Dates: start: 20191128
  43. HARTMANNS [Concomitant]
     Active Substance: CALCIUM CHLORIDE\POTASSIUM CHLORIDE\SODIUM LACTATE
     Indication: DYSPNOEA
     Dosage: 1000 ML
     Route: 065
     Dates: start: 20200113, end: 20200113
  44. HARTMANNS [Concomitant]
     Active Substance: CALCIUM CHLORIDE\POTASSIUM CHLORIDE\SODIUM LACTATE
     Dosage: UNK
     Route: 065
     Dates: start: 20200203, end: 20200203
  45. HARTMANNS [Concomitant]
     Active Substance: CALCIUM CHLORIDE\POTASSIUM CHLORIDE\SODIUM LACTATE
     Dosage: UNK
     Route: 065
     Dates: start: 20200205, end: 20200205

REACTIONS (1)
  - Lower respiratory tract infection [Recovered/Resolved]

NARRATIVE: CASE EVENT DATE: 20200202
